FAERS Safety Report 10184141 (Version 2)
Quarter: 2014Q2

REPORT INFORMATION
  Report Type: Report from Study
  Country: CA (occurrence: CA)
  Receive Date: 20140520
  Receipt Date: 20140626
  Transmission Date: 20141212
  Serious: Yes (Hospitalization, Other)
  Sender: FDA-Public Use
  Company Number: CA-ABBVIE-14P-028-1239171-00

PATIENT
  Age: 65 Year
  Sex: Female

DRUGS (8)
  1. MAVIK [Suspect]
     Indication: HYPERTENSION
     Dates: start: 201309, end: 20140508
  2. MAVIK [Suspect]
     Dates: start: 201406
  3. LEVETIRACETAM [Suspect]
     Indication: PRODUCT USED FOR UNKNOWN INDICATION
     Dates: start: 201405, end: 201406
  4. DEXAMETHASONE [Suspect]
     Indication: PRODUCT USED FOR UNKNOWN INDICATION
     Dosage: 1/2 TABLETS(2 MG); DAILY DOSE: 4 MILLIGRAM
     Dates: start: 201405, end: 201406
  5. METFORMIN [Concomitant]
     Indication: PRODUCT USED FOR UNKNOWN INDICATION
  6. RANITIDINE [Concomitant]
     Indication: PRODUCT USED FOR UNKNOWN INDICATION
     Dates: end: 2014
  7. ALL OTHER THERAPEUTIC PRODUCTS [Concomitant]
     Indication: BLOOD CHOLESTEROL
     Dates: start: 201309
  8. ALL OTHER THERAPEUTIC PRODUCTS [Concomitant]
     Indication: THYROID DISORDER
     Dates: start: 201309

REACTIONS (7)
  - Convulsion [Recovered/Resolved]
  - Paralysis [Recovered/Resolved]
  - Aphasia [Recovered/Resolved]
  - Brain neoplasm [Recovered/Resolved]
  - Brain neoplasm [Recovered/Resolved]
  - Hypotension [Recovered/Resolved]
  - Blood glucose decreased [Not Recovered/Not Resolved]
